FAERS Safety Report 5141850-6 (Version None)
Quarter: 2006Q4

REPORT INFORMATION
  Report Type: 
  Country: None (occurrence: None)
  Receive Date: 20061027
  Receipt Date: 20061012
  Transmission Date: 20070319
  Serious: Yes (Other)
  Sender: FDA-Public Use
  Company Number: DE200610002463

PATIENT
  Sex: Female

DRUGS (1)
  1. ZYPREXA [Suspect]
     Indication: SCHIZOPHRENIA

REACTIONS (5)
  - BLOOD GLUCOSE INCREASED [None]
  - DIABETES INSIPIDUS [None]
  - HYPERTENSION [None]
  - TACHYCARDIA [None]
  - VAGINAL HAEMORRHAGE [None]
